FAERS Safety Report 17333187 (Version 1)
Quarter: 2020Q1

REPORT INFORMATION
  Report Type: Report from Study
  Country: NL (occurrence: NL)
  Receive Date: 20200128
  Receipt Date: 20200128
  Transmission Date: 20200409
  Serious: Yes (Other)
  Sender: FDA-Public Use
  Company Number: NL-MYLANLABS-2019M1133084

PATIENT
  Age: 41 Year
  Sex: Female
  Weight: 72 kg

DRUGS (1)
  1. GLATIRAMEERACETAAT MYLAN 40 MG/ML [Suspect]
     Active Substance: GLATIRAMER ACETATE
     Indication: MULTIPLE SCLEROSIS
     Dosage: 40 MILLIGRAM, 3XW
     Route: 058
     Dates: start: 20181221

REACTIONS (3)
  - Vitamin D decreased [Not Recovered/Not Resolved]
  - Haemoglobin decreased [Not Recovered/Not Resolved]
  - Vitamin B12 decreased [Not Recovered/Not Resolved]

NARRATIVE: CASE EVENT DATE: 201912
